FAERS Safety Report 23492486 (Version 1)
Quarter: 2024Q1

REPORT INFORMATION
  Report Type: Report from Study
  Country: FR (occurrence: FR)
  Receive Date: 20240207
  Receipt Date: 20240207
  Transmission Date: 20240410
  Serious: Yes (Hospitalization, Other)
  Sender: FDA-Public Use
  Company Number: FR-CELLTRION INC.-2024FR002172

PATIENT

DRUGS (4)
  1. BEVACIZUMAB [Suspect]
     Active Substance: BEVACIZUMAB
     Indication: Non-small cell lung cancer
     Dosage: 15 MG/KG EVERY 3 WEEKS; DATE OF LAST ADMINISTRATION OF STUDY TREATMENT 30 NOV 2023
     Route: 042
     Dates: start: 20231017, end: 20231130
  2. PACLITAXEL [Suspect]
     Active Substance: PACLITAXEL
     Indication: Non-small cell lung cancer
     Dosage: 200 MG/M2 EVERY 3 WEEKS; DATE OF LAST ADMINISTRATION OF STUDY TREATMENT 30 NOV 2023
     Route: 042
     Dates: start: 20231017, end: 20231130
  3. ATEZOLIZUMAB [Concomitant]
     Active Substance: ATEZOLIZUMAB
     Indication: Non-small cell lung cancer
     Dosage: 1200 MG EVERY 3 WEEKS; DATE OF LAST ADMINISTRATION OF STUDY TREATMENT 30 NOV 2023
     Dates: start: 20231017, end: 20231130
  4. GABAPENTIN [Concomitant]
     Active Substance: GABAPENTIN
     Dosage: UNK
     Dates: start: 20231201

REACTIONS (1)
  - Epilepsy [Recovered/Resolved]

NARRATIVE: CASE EVENT DATE: 20231204
